FAERS Safety Report 23701582 (Version 1)
Quarter: 2024Q2

REPORT INFORMATION
  Report Type: Spontaneous
  Country: HR (occurrence: HR)
  Receive Date: 20240403
  Receipt Date: 20240403
  Transmission Date: 20240716
  Serious: Yes (Hospitalization)
  Sender: FDA-Public Use
  Company Number: None

PATIENT
  Age: 52 Year
  Sex: Female

DRUGS (2)
  1. CAPECITABINE [Suspect]
     Active Substance: CAPECITABINE
     Indication: Adenocarcinoma of colon
     Dates: start: 20210601, end: 20211015
  2. FLUOROURACIL [Suspect]
     Active Substance: FLUOROURACIL
     Indication: Adenocarcinoma of colon
     Dosage: UNK, (THOUGH, THERAPY HAD BEEN POSTPONED ON SEVERAL OCCASIONS)
     Dates: start: 20201021

REACTIONS (6)
  - Haemoglobin decreased [Unknown]
  - Adenocarcinoma of colon [Unknown]
  - Malignant neoplasm progression [Unknown]
  - Mucosal inflammation [Unknown]
  - White blood cell count decreased [Unknown]
  - Neutrophil count decreased [Unknown]

NARRATIVE: CASE EVENT DATE: 20220401
